FAERS Safety Report 14253038 (Version 1)
Quarter: 2017Q4

REPORT INFORMATION
  Report Type: Spontaneous
  Country: SI (occurrence: SI)
  Receive Date: 20171205
  Receipt Date: 20171205
  Transmission Date: 20180321
  Serious: Yes (Death, Other)
  Sender: FDA-Public Use
  Company Number: SI-BAYER-2017-228945

PATIENT
  Sex: Male

DRUGS (3)
  1. CABAZITAXEL [Concomitant]
     Active Substance: CABAZITAXEL
     Dosage: UNK (15 MG/M2, 2 CYCLES)
     Dates: start: 201706, end: 201707
  2. XOFIGO [Suspect]
     Active Substance: RADIUM RA-223 DICHLORIDE
     Indication: HORMONE-REFRACTORY PROSTATE CANCER
     Dosage: UNK (6 CYCLES)
     Dates: start: 20161123, end: 201704
  3. ASPIRIN [ACETYLSALICYLIC ACID] [Concomitant]
     Active Substance: ASPIRIN
     Dosage: UNK

REACTIONS (16)
  - Platelet count decreased [None]
  - Thrombocytopenia [None]
  - Blood phosphorus decreased [None]
  - Blood calcium decreased [None]
  - Aspartate aminotransferase increased [None]
  - Anaemia [None]
  - Prostate cancer metastatic [None]
  - Haemoglobin decreased [None]
  - Blood pressure increased [None]
  - Death [Fatal]
  - Prostatic specific antigen increased [None]
  - Back pain [None]
  - Blood uric acid increased [None]
  - Blood lactate dehydrogenase increased [None]
  - Osteolysis [None]
  - Ascites [None]

NARRATIVE: CASE EVENT DATE: 201703
